FAERS Safety Report 7219141-9 (Version None)
Quarter: 2011Q1

REPORT INFORMATION
  Report Type: 
  Country: None (occurrence: None)
  Receive Date: 20110111
  Receipt Date: 20101230
  Transmission Date: 20110831
  Serious: Yes (Hospitalization)
  Sender: FDA-Public Use
  Company Number: US-ELI_LILLY_AND_COMPANY-US201008006713

PATIENT
  Sex: Female

DRUGS (4)
  1. MULTI-VITAMIN [Concomitant]
  2. FORTEO [Suspect]
     Indication: OSTEOPOROSIS
     Dosage: 20 UG, DAILY (1/D)
     Dates: start: 20100201
  3. VITAMIN D [Concomitant]
  4. CALCIUM [Concomitant]

REACTIONS (5)
  - CARDIAC MURMUR [None]
  - DYSKINESIA [None]
  - COORDINATION ABNORMAL [None]
  - HYPOAESTHESIA [None]
  - DIZZINESS [None]
